FAERS Safety Report 9353445 (Version 2)
Quarter: 2013Q2

REPORT INFORMATION
  Report Type: Spontaneous
  Country: NL (occurrence: NL)
  Receive Date: 20130618
  Receipt Date: 20130619
  Transmission Date: 20140414
  Serious: Yes (Death)
  Sender: FDA-Public Use
  Company Number: NL-PFIZER INC-2013181748

PATIENT
  Age: 42 Year
  Sex: Male
  Weight: 62 kg

DRUGS (2)
  1. ALPRAZOLAM [Suspect]
     Indication: SUICIDAL IDEATION
     Dosage: 0.5 MG, UNK
     Dates: start: 201306
  2. ALPRAZOLAM [Suspect]
     Indication: ANXIETY

REACTIONS (2)
  - Off label use [Fatal]
  - Completed suicide [Fatal]
